FAERS Safety Report 7979754-3 (Version None)
Quarter: 2011Q4

REPORT INFORMATION
  Report Type: 
  Country: None (occurrence: None)
  Receive Date: 20111214
  Receipt Date: 20111129
  Transmission Date: 20120403
  Serious: Yes (Hospitalization, Other)
  Sender: FDA-Public Use
  Company Number: US-WATSON-2011-21306

PATIENT
  Age: 8 Month
  Sex: Male

DRUGS (1)
  1. TRAMADOL HCL [Suspect]
     Indication: PRODUCT USED FOR UNKNOWN INDICATION
     Dosage: 200 MG, UNKNOWN 1-3 TABLETS
     Route: 048

REACTIONS (4)
  - GRAND MAL CONVULSION [None]
  - ACCIDENTAL EXPOSURE [None]
  - RESPIRATORY DEPRESSION [None]
  - AGITATION [None]
